FAERS Safety Report 7944642-5 (Version None)
Quarter: 2011Q4

REPORT INFORMATION
  Report Type: 
  Country: None (occurrence: None)
  Receive Date: 20111122
  Receipt Date: 20110706
  Transmission Date: 20120403
  Serious: Yes (Other)
  Sender: FDA-Public Use
  Company Number: PHHY2011US25109

PATIENT
  Age: 62 Year
  Sex: Female
  Weight: 70.7 kg

DRUGS (11)
  1. ZANAFLEX (TIZANIDINE HYDROCHLORIDE), 4 MG [Concomitant]
  2. BONIVA [Concomitant]
  3. RITALIN (METHYLPHENIDATE HYDROCHLORIDE), 10 MG [Concomitant]
  4. GILENYA [Suspect]
     Indication: MULTIPLE SCLEROSIS
     Dosage: 0.5 MG, QD, ORAL
     Route: 048
     Dates: start: 20110406
  5. GILENYA [Suspect]
     Indication: MULTIPLE SCLEROSIS
     Dosage: 0.5 MG, QD, ORAL
     Route: 048
     Dates: start: 20110225, end: 20110425
  6. DITROPAN /USA/ (OXYBUTYNIN), 10 MG [Concomitant]
  7. KLONOPIN [Concomitant]
  8. CALTRATE (CALCIUM CARBONATE), 600 MG [Concomitant]
  9. NEURONTIN [Concomitant]
  10. BACLOFEN [Concomitant]
  11. LASIX [Concomitant]

REACTIONS (5)
  - VISUAL ACUITY REDUCED [None]
  - HYPERTENSION [None]
  - PAIN [None]
  - DYSSTASIA [None]
  - FATIGUE [None]
